FAERS Safety Report 8869298 (Version 1)
Quarter: 2012Q4

REPORT INFORMATION
  Report Type: Spontaneous
  Country: US (occurrence: None)
  Receive Date: 20121025
  Receipt Date: 20121025
  Transmission Date: 20130627
  Serious: Yes (Hospitalization)
  Sender: FDA-Public Use
  Company Number: None

PATIENT
  Age: 76 Year
  Sex: Female

DRUGS (1)
  1. PRADAXA 150MG BOEHRINGER INGLEHEIM [Suspect]
     Indication: ATRIAL FIBRILLATION
     Dosage: 150mg twice daily po
     Route: 048
     Dates: start: 20120302, end: 20120307

REACTIONS (3)
  - Vaginal haemorrhage [None]
  - Rectal haemorrhage [None]
  - Gastrointestinal haemorrhage [None]
